FAERS Safety Report 8917430 (Version 1)
Quarter: 2012Q4

REPORT INFORMATION
  Report Type: 
  Country: JP (occurrence: JP)
  Receive Date: 20121120
  Receipt Date: 20121120
  Transmission Date: 20130627
  Serious: Yes (Other)
  Sender: FDA-Public Use
  Company Number: JP-PFIZER INC-2012290060

PATIENT
  Age: 83 Year
  Sex: Male

DRUGS (6)
  1. LYRICA [Suspect]
     Indication: PAIN IN FOOT
     Dosage: 75 mg, 1x/day in the evening
     Route: 048
     Dates: start: 20121003, end: 20121105
  2. LYRICA [Suspect]
     Indication: LUMBAR SPINAL STENOSIS
     Dosage: 150 mg in the morning and 75 mg in the evening
     Route: 048
     Dates: start: 20121106
  3. NU LOTAN [Suspect]
     Dosage: 25 mg, daily
     Route: 048
  4. LENDORMIN [Suspect]
     Dosage: 0.25 mg, daily
     Route: 048
  5. DILTIAZEM HYDROCHLORIDE [Suspect]
     Dosage: 100 mg, daily
     Route: 048
  6. LASIX [Suspect]
     Dosage: 40 mg, daily
     Route: 048

REACTIONS (1)
  - Haemorrhage subcutaneous [Not Recovered/Not Resolved]
